FAERS Safety Report 11572362 (Version 1)
Quarter: 2015Q3

REPORT INFORMATION
  Report Type: Spontaneous
  Country: US (occurrence: US)
  Receive Date: 20150929
  Receipt Date: 20150929
  Transmission Date: 20151125
  Serious: Yes (Other)
  Sender: FDA-Public Use
  Company Number: US-INSYS THERAPEUTICS, INC-INS201508-000364

PATIENT
  Age: 52 Year
  Sex: Female
  Weight: 93.9 kg

DRUGS (27)
  1. LASIX [Concomitant]
     Active Substance: FUROSEMIDE
     Indication: PERIPHERAL SWELLING
  2. LURASIDONE [Concomitant]
     Active Substance: LURASIDONE
     Indication: SCHIZOPHRENIA
  3. DULOXETINE. [Concomitant]
     Active Substance: DULOXETINE
  4. VITAMIN BL2 [Concomitant]
  5. SUBSYS [Suspect]
     Active Substance: FENTANYL
     Indication: ARTHRITIS
  6. IRON [Concomitant]
     Active Substance: IRON
  7. VITAMIN D3 [Concomitant]
     Active Substance: CHOLECALCIFEROL
  8. BUSPIRONE HYDROCHLORIDE. [Concomitant]
     Active Substance: BUSPIRONE HYDROCHLORIDE
  9. ASPIRIN. [Concomitant]
     Active Substance: ASPIRIN
  10. GABAPENTIN. [Concomitant]
     Active Substance: GABAPENTIN
  11. ACETAMINOPHEN. [Concomitant]
     Active Substance: ACETAMINOPHEN
  12. BUTALBITAL [Concomitant]
     Active Substance: BUTALBITAL
  13. OXYMORPHONE [Concomitant]
     Active Substance: OXYMORPHONE
     Indication: PAIN
  14. RISPERIDONE. [Concomitant]
     Active Substance: RISPERIDONE
  15. CAFFEINE. [Concomitant]
     Active Substance: CAFFEINE
  16. LORAZEPAM. [Concomitant]
     Active Substance: LORAZEPAM
     Indication: SEIZURE
  17. LASIX [Concomitant]
     Active Substance: FUROSEMIDE
     Indication: PERIPHERAL SWELLING
  18. HUMALOG [Concomitant]
     Active Substance: INSULIN LISPRO
  19. ONDANSETRON [Concomitant]
     Active Substance: ONDANSETRON
     Indication: NAUSEA
  20. LOVAZA [Concomitant]
     Active Substance: OMEGA-3-ACID ETHYL ESTERS
     Indication: DIABETES MELLITUS
  21. LANTUS [Concomitant]
     Active Substance: INSULIN GLARGINE
  22. RISPERIDONE. [Concomitant]
     Active Substance: RISPERIDONE
  23. TRAZODONE [Concomitant]
     Active Substance: TRAZODONE HYDROCHLORIDE
  24. LOPERAMIDE [Concomitant]
     Active Substance: LOPERAMIDE
     Indication: DIARRHOEA
  25. SUBSYS [Suspect]
     Active Substance: FENTANYL
     Indication: FIBROMYALGIA
     Dates: start: 201507
  26. TRILIPIX [Concomitant]
     Active Substance: FENOFIBRIC ACID
     Indication: BLOOD CHOLESTEROL INCREASED
  27. PRAVASTATIN [Concomitant]
     Active Substance: PRAVASTATIN\PRAVASTATIN SODIUM
     Indication: BLOOD CHOLESTEROL INCREASED

REACTIONS (4)
  - Fungal infection [Not Recovered/Not Resolved]
  - Off label use [Unknown]
  - Duodenal ulcer haemorrhage [Not Recovered/Not Resolved]
  - Uterine mass [Unknown]

NARRATIVE: CASE EVENT DATE: 201507
